FAERS Safety Report 12599681 (Version 1)
Quarter: 2016Q3

REPORT INFORMATION
  Report Type: Spontaneous
  Country: US (occurrence: US)
  Receive Date: 20160727
  Receipt Date: 20160727
  Transmission Date: 20161109
  Serious: No
  Sender: FDA-Public Use
  Company Number: US-SA-2015SA134083

PATIENT
  Age: 47 Year
  Sex: Female

DRUGS (8)
  1. SINGULAIR [Interacting]
     Active Substance: MONTELUKAST SODIUM
     Route: 065
  2. OXYBUTYNIN HYDROCHLORIDE [Interacting]
     Active Substance: OXYBUTYNIN CHLORIDE
     Route: 065
  3. TRAMADOL. [Suspect]
     Active Substance: TRAMADOL
     Route: 065
  4. LEUPROLIDE ACETATE. [Interacting]
     Active Substance: LEUPROLIDE ACETATE
     Route: 030
     Dates: start: 201505
  5. SIMVASTATIN. [Interacting]
     Active Substance: SIMVASTATIN
     Route: 065
  6. DETROL [Suspect]
     Active Substance: TOLTERODINE TARTRATE
     Route: 065
  7. OXYCODONE HYDROCHLORIDE. [Interacting]
     Active Substance: OXYCODONE HYDROCHLORIDE
     Route: 065
  8. AMBIEN [Suspect]
     Active Substance: ZOLPIDEM TARTRATE
     Route: 065

REACTIONS (9)
  - Decreased appetite [Unknown]
  - Drug interaction [Unknown]
  - Confusional state [Unknown]
  - Micturition disorder [Unknown]
  - Dizziness [Unknown]
  - Asthenia [Unknown]
  - Insomnia [Unknown]
  - Dry mouth [Unknown]
  - Weight decreased [Unknown]

NARRATIVE: CASE EVENT DATE: 20150803
